FAERS Safety Report 19642514 (Version 1)
Quarter: 2021Q3

REPORT INFORMATION
  Report Type: Report from Study
  Country: CA (occurrence: CA)
  Receive Date: 20210731
  Receipt Date: 20210731
  Transmission Date: 20211014
  Serious: Yes (Hospitalization)
  Sender: FDA-Public Use
  Company Number: CA-ACCORD-233907

PATIENT
  Age: 70 Year
  Sex: Female
  Weight: 90 kg

DRUGS (15)
  1. CLOXACILLIN [Concomitant]
     Active Substance: CLOXACILLIN
  2. ELOCOM [Concomitant]
     Active Substance: MOMETASONE FUROATE
  3. NYSTATIN/NYSTATIN/LIPOSOME [Concomitant]
     Active Substance: NYSTATIN
  4. ONDANSETRON [Concomitant]
     Active Substance: ONDANSETRON
  5. GLUCOSE [Concomitant]
     Active Substance: DEXTROSE
  6. EZETROL [Concomitant]
     Active Substance: EZETIMIBE
  7. LOPERAMIDE [Concomitant]
     Active Substance: LOPERAMIDE
  8. PEMBROLIZUMAB. [Suspect]
     Active Substance: PEMBROLIZUMAB
     Indication: COLORECTAL CANCER METASTATIC
     Dosage: 1 EVERY 3 WEEKS
     Route: 042
  9. DEXAMETHASONE. [Concomitant]
     Active Substance: DEXAMETHASONE
     Indication: SWELLING
  10. ZOLMITRIPTAN. [Concomitant]
     Active Substance: ZOLMITRIPTAN
  11. TYLENOL [Concomitant]
     Active Substance: ACETAMINOPHEN
  12. FLUOROURACIL. [Suspect]
     Active Substance: FLUOROURACIL
     Indication: COLORECTAL CANCER METASTATIC
     Dosage: CYCLICAL
     Route: 042
  13. BINIMETINIB [Suspect]
     Active Substance: BINIMETINIB
     Indication: COLORECTAL CANCER METASTATIC
     Route: 048
  14. IRINOTECAN [Suspect]
     Active Substance: IRINOTECAN
     Indication: COLORECTAL CANCER METASTATIC
     Dosage: CYCLICAL
     Route: 042
  15. LEUCOVORIN. [Suspect]
     Active Substance: LEUCOVORIN
     Indication: COLORECTAL CANCER METASTATIC
     Dosage: CYCLICAL
     Route: 042

REACTIONS (1)
  - Embolism [Recovered/Resolved]
